FAERS Safety Report 16629082 (Version 1)
Quarter: 2019Q3

REPORT INFORMATION
  Report Type: Report from Study
  Country: None (occurrence: DE)
  Receive Date: 20190725
  Receipt Date: 20190725
  Transmission Date: 20191004
  Serious: Yes (Other)
  Sender: FDA-Public Use
  Company Number: DE-ABBVIE-19K-062-2860121-00

PATIENT
  Sex: Female

DRUGS (3)
  1. JODTHYROX [Concomitant]
     Active Substance: LEVOTHYROXINE SODIUM\POTASSIUM IODIDE
     Indication: THYROID DISORDER
  2. HUMIRA [Suspect]
     Active Substance: ADALIMUMAB
     Route: 058
     Dates: end: 2019
  3. HUMIRA [Suspect]
     Active Substance: ADALIMUMAB
     Indication: RHEUMATOID ARTHRITIS
     Route: 058
     Dates: start: 2010

REACTIONS (7)
  - Precancerous cells present [Unknown]
  - Meningoencephalitis herpetic [Recovered/Resolved]
  - Gastrointestinal tract adenoma [Not Recovered/Not Resolved]
  - Sinusitis [Recovered/Resolved]
  - Bronchitis [Recovered/Resolved]
  - Adenoidectomy [Recovered/Resolved]
  - Infection susceptibility increased [Not Recovered/Not Resolved]

NARRATIVE: CASE EVENT DATE: 2010
